FAERS Safety Report 9829891 (Version 3)
Quarter: 2014Q2

REPORT INFORMATION
  Report Type: Report from Study
  Country: CN (occurrence: CN)
  Receive Date: 20140120
  Receipt Date: 20140422
  Transmission Date: 20141212
  Serious: Yes (Death, Hospitalization, Other)
  Sender: FDA-Public Use
  Company Number: CN-BAYER-2013-151948

PATIENT
  Age: 52 Year
  Sex: Male

DRUGS (6)
  1. NEXAVAR [Suspect]
     Indication: HEPATIC CANCER STAGE IV
     Dosage: 400 MG, BID
     Route: 048
     Dates: start: 20131106, end: 20131210
  2. NEXAVAR [Suspect]
     Indication: HEPATIC CANCER STAGE IV
     Dosage: 400 MG, QD
     Dates: start: 20131211, end: 20131212
  3. NEXAVAR [Suspect]
     Indication: HEPATIC CANCER STAGE IV
     Dosage: 400 MG, QD
     Dates: start: 20131223, end: 20131225
  4. NEXAVAR [Suspect]
     Indication: HEPATIC CANCER STAGE IV
     Dosage: 400 MG, BID
     Dates: start: 20131226, end: 20131226
  5. NEXAVAR [Suspect]
     Indication: HEPATIC CANCER STAGE IV
     Dosage: 400 MG, QD
     Dates: start: 20131227
  6. NEXAVAR [Suspect]
     Indication: HEPATIC CANCER STAGE IV
     Dosage: 400 MG, BID
     Route: 048
     Dates: start: 20131228, end: 20140116

REACTIONS (6)
  - Rash [None]
  - Heart rate increased [Recovered/Resolved]
  - Blood pressure increased [None]
  - Dizziness [Recovering/Resolving]
  - Vomiting [Recovering/Resolving]
  - Death [Fatal]
